FAERS Safety Report 19427398 (Version 1)
Quarter: 2021Q2

REPORT INFORMATION
  Report Type: Other
  Country: US (occurrence: US)
  Receive Date: 20210616
  Receipt Date: 20210616
  Transmission Date: 20210717
  Serious: Yes (Disabling)
  Sender: FDA-Public Use
  Company Number: US-ROCHE-2806546

PATIENT
  Sex: Female
  Weight: 104 kg

DRUGS (1)
  1. EVRYSDI [Suspect]
     Active Substance: RISDIPLAM
     Indication: SPINAL MUSCULAR ATROPHY
     Dosage: STRENGTH: 0.75 MG/ML
     Route: 048

REACTIONS (1)
  - Arthralgia [Not Recovered/Not Resolved]
